FAERS Safety Report 6158965-6 (Version None)
Quarter: 2009Q2

REPORT INFORMATION
  Report Type: 
  Country: None (occurrence: None)
  Receive Date: 20090417
  Receipt Date: 20070531
  Transmission Date: 20091009
  Serious: Yes (Hospitalization)
  Sender: FDA-Public Use
  Company Number: FR-PFIZER INC-2009187813

PATIENT

DRUGS (6)
  1. IRINOTECAN HCL [Suspect]
     Indication: GASTRIC CANCER
  2. EPIRUBICIN HCL [Suspect]
     Indication: GASTRIC CANCER
  3. FOLINIC ACID [Suspect]
     Indication: GASTRIC CANCER
  4. FLUOROURACIL [Suspect]
     Indication: GASTRIC CANCER
  5. CISPLATIN [Suspect]
     Indication: GASTRIC CANCER
  6. CAPECITABINE [Suspect]
     Indication: GASTRIC CANCER

REACTIONS (3)
  - COLITIS ISCHAEMIC [None]
  - DIARRHOEA [None]
  - RECTAL HAEMORRHAGE [None]
